FAERS Safety Report 18351944 (Version 1)
Quarter: 2020Q4

REPORT INFORMATION
  Report Type: Spontaneous
  Country: JP (occurrence: JP)
  Receive Date: 20201007
  Receipt Date: 20201007
  Transmission Date: 20210114
  Serious: Yes (Other)
  Sender: FDA-Public Use
  Company Number: JP-LUPIN PHARMACEUTICALS INC.-2020-06850

PATIENT
  Age: 85 Year
  Sex: Male

DRUGS (3)
  1. BUDESONIDE. [Suspect]
     Active Substance: BUDESONIDE
     Dosage: 400 MICROGRAM, QD
     Route: 048
  2. BUDESONIDE. [Suspect]
     Active Substance: BUDESONIDE
     Dosage: 400 MICROGRAM, QD
     Route: 061
  3. BUDESONIDE. [Suspect]
     Active Substance: BUDESONIDE
     Indication: EOSINOPHILIC OESOPHAGITIS
     Dosage: 1200 MICROGRAM, QD
     Route: 048

REACTIONS (2)
  - Cytomegalovirus oesophagitis [Recovered/Resolved]
  - Drug ineffective [Unknown]
